FAERS Safety Report 6721053-1 (Version None)
Quarter: 2010Q2

REPORT INFORMATION
  Report Type: 
  Country: None (occurrence: None)
  Receive Date: 20100512
  Receipt Date: 20100428
  Transmission Date: 20101027
  Serious: Yes (Hospitalization)
  Sender: FDA-Public Use
  Company Number: US-SHIRE-SPV1-2010-00539

PATIENT
  Sex: Male

DRUGS (2)
  1. ELAPRASE [Suspect]
     Indication: MUCOPOLYSACCHARIDOSIS II
     Dosage: 4 DF, 1X/WEEK
     Route: 041
     Dates: start: 20071212
  2. ELAPRASE [Suspect]
     Dosage: 24 MG, 1X/WEEK
     Route: 042
     Dates: start: 20090105, end: 20100316

REACTIONS (5)
  - DENTAL OPERATION [None]
  - DEVICE RELATED INFECTION [None]
  - OBSTRUCTIVE AIRWAYS DISORDER [None]
  - RESPIRATORY ARREST [None]
  - WEANING FAILURE [None]
